FAERS Safety Report 22177204 (Version 1)
Quarter: 2023Q2

REPORT INFORMATION
  Report Type: Spontaneous
  Country: US (occurrence: None)
  Receive Date: 20230404
  Receipt Date: 20230404
  Transmission Date: 20230722
  Serious: Yes (Hospitalization)
  Sender: FDA-Public Use
  Company Number: None

PATIENT
  Age: 48 Year
  Sex: Female

DRUGS (1)
  1. HUMIRA [Suspect]
     Active Substance: ADALIMUMAB
     Dosage: 40MG OTHER  SUBCUTANEOUS?
     Route: 058
     Dates: start: 202210

REACTIONS (2)
  - Wrist fracture [None]
  - Complex regional pain syndrome [None]

NARRATIVE: CASE EVENT DATE: 20230205
